FAERS Safety Report 8928595 (Version 2)
Quarter: 2013Q1

REPORT INFORMATION
  Report Type: Spontaneous
  Country: US (occurrence: US)
  Receive Date: 20121128
  Receipt Date: 20130319
  Transmission Date: 20140127
  Serious: Yes (Death, Hospitalization, Congenital Anomaly, Other)
  Sender: FDA-Public Use
  Company Number: US-ELI_LILLY_AND_COMPANY-US201211005371

PATIENT
  Sex: Female

DRUGS (1)
  1. PROZAC [Suspect]
     Dosage: 1 DF, UNKNOWN
     Route: 064

REACTIONS (9)
  - Cor pulmonale [Fatal]
  - Respiratory disorder neonatal [Unknown]
  - Congenital diaphragmatic hernia [Unknown]
  - Nervous system disorder [Unknown]
  - Convulsion neonatal [Unknown]
  - Premature baby [Unknown]
  - Foot deformity [Unknown]
  - Hernia [Unknown]
  - Foetal exposure during pregnancy [Recovered/Resolved]
